FAERS Safety Report 10563113 (Version 1)
Quarter: 2014Q4

REPORT INFORMATION
  Report Type: Spontaneous
  Country: US (occurrence: None)
  Receive Date: 20141103
  Receipt Date: 20141103
  Transmission Date: 20150529
  Serious: No
  Sender: FDA-Public Use
  Company Number: None

PATIENT
  Age: 21 Year
  Sex: Female
  Weight: 86.18 kg

DRUGS (1)
  1. SUBOXONE [Suspect]
     Active Substance: BUPRENORPHINE HYDROCHLORIDE\NALOXONE HYDROCHLORIDE
     Dosage: HALF A FILM/ 4MG?TWICE DAILY?TAKEN UNDER THE TONGUE
     Route: 060
     Dates: start: 20141024, end: 20141101

REACTIONS (2)
  - Oral pain [None]
  - Mouth ulceration [None]

NARRATIVE: CASE EVENT DATE: 20141031
